FAERS Safety Report 12676662 (Version 3)
Quarter: 2016Q3

REPORT INFORMATION
  Report Type: Report from Study
  Country: US (occurrence: US)
  Receive Date: 20160823
  Receipt Date: 20160930
  Transmission Date: 20161109
  Serious: Yes (Disabling, Other)
  Sender: FDA-Public Use
  Company Number: US-009507513-1608USA010506

PATIENT
  Sex: Male
  Weight: 50 kg

DRUGS (3)
  1. ERBITUX [Concomitant]
     Active Substance: CETUXIMAB
     Dosage: UNK
  2. EMEND (FOSAPREPITANT DIMEGLUMINE) [Suspect]
     Active Substance: FOSAPREPITANT DIMEGLUMINE
     Indication: PROPHYLAXIS OF NAUSEA AND VOMITING
     Dosage: UNK, EVERY 2 WEEKS, INFUSION
     Route: 042
     Dates: start: 20160817, end: 20160817
  3. IRINOTECAN HYDROCHLORIDE. [Suspect]
     Active Substance: IRINOTECAN HYDROCHLORIDE
     Indication: CHEMOTHERAPY
     Dosage: 299 (UNIT NOT REPORTED) DAILY, EVERY 2 WKS
     Route: 042
     Dates: start: 20160817

REACTIONS (3)
  - Recurrent cancer [Unknown]
  - Drug ineffective [Unknown]
  - Diarrhoea [Unknown]

NARRATIVE: CASE EVENT DATE: 2016
